FAERS Safety Report 5306611-3 (Version None)
Quarter: 2007Q2

REPORT INFORMATION
  Report Type: 
  Country: None (occurrence: None)
  Receive Date: 20070418
  Receipt Date: 20070320
  Transmission Date: 20071010
  Serious: Yes (Hospitalization)
  Sender: FDA-Public Use
  Company Number: CLOF-10484

PATIENT
  Age: 47 Year
  Sex: Female
  Weight: 54 kg

DRUGS (2)
  1. CLOFARBINE [Suspect]
     Indication: ACUTE MYELOID LEUKAEMIA
     Dosage: 40 MG/M2 QD IV
     Route: 042
     Dates: start: 20061028, end: 20061101
  2. CYTARABINE [Suspect]
     Indication: ACUTE MYELOID LEUKAEMIA
     Dosage: 1000 MG/M2 QD IV
     Route: 042
     Dates: start: 20061027, end: 20061031

REACTIONS (2)
  - APLASIA [None]
  - HEPATOSPLENIC CANDIDIASIS [None]
